FAERS Safety Report 8859024 (Version 1)
Quarter: 2012Q4

REPORT INFORMATION
  Report Type: 
  Country: IT (occurrence: IT)
  Receive Date: 20121024
  Receipt Date: 20121024
  Transmission Date: 20130627
  Serious: Yes (Hospitalization)
  Sender: FDA-Public Use
  Company Number: IT-BAYER-2012-107593

PATIENT
  Age: 62 Year
  Sex: Male

DRUGS (10)
  1. CARDIOASPIRIN [Suspect]
     Dosage: 100 mg, QD
     Route: 048
     Dates: start: 20120101, end: 20121005
  2. CARDIOASPIRIN [Suspect]
     Route: 048
  3. PLAVIX [Suspect]
     Dosage: Daily dose 75 mg
     Route: 048
     Dates: start: 20120101, end: 20121005
  4. PLAVIX [Suspect]
     Route: 048
  5. MEDROL [Suspect]
     Dosage: Daily dose 8 mg
     Route: 048
     Dates: start: 20121005, end: 20121005
  6. CARDICOR [Concomitant]
     Route: 048
  7. TRIATEC [Concomitant]
     Route: 048
  8. TORVAST [Concomitant]
     Route: 048
  9. ZANTAC [Concomitant]
     Route: 048
  10. SEACOR [Concomitant]
     Route: 048

REACTIONS (2)
  - Abdominal pain upper [Unknown]
  - Unevaluable event [Unknown]
